FAERS Safety Report 17593231 (Version 3)
Quarter: 2020Q2

REPORT INFORMATION
  Report Type: Report from Study
  Country: None (occurrence: CA)
  Receive Date: 20200327
  Receipt Date: 20200626
  Transmission Date: 20200713
  Serious: Yes (Other)
  Sender: FDA-Public Use
  Company Number: CA-ABBVIE-20K-028-3339422-00

PATIENT
  Sex: Female
  Weight: 63.56 kg

DRUGS (2)
  1. HPV VACCINE [Concomitant]
     Active Substance: HUMAN PAPILLOMAVIRUS QUADRIVALENT (TYPES 6, 11, 16, AND 18) VACCINE, RECOMBINANT
     Indication: PRODUCT USED FOR UNKNOWN INDICATION
     Dates: start: 2019
  2. HUMIRA [Suspect]
     Active Substance: ADALIMUMAB
     Indication: HIDRADENITIS
     Route: 058
     Dates: start: 20191111

REACTIONS (2)
  - Cervical dysplasia [Unknown]
  - Precancerous condition [Recovered/Resolved]
